FAERS Safety Report 8265927-1 (Version None)
Quarter: 2012Q2

REPORT INFORMATION
  Report Type: 
  Country: None (occurrence: None)
  Receive Date: 20120404
  Receipt Date: 20120322
  Transmission Date: 20120825
  Serious: Yes (Other)
  Sender: FDA-Public Use
  Company Number: 1203-149

PATIENT
  Sex: Female

DRUGS (1)
  1. EYLEA [Suspect]
     Dosage: 2 MG, INTRAVITREAL

REACTIONS (3)
  - VISION BLURRED [None]
  - EYE DISORDER [None]
  - INFLAMMATION [None]
